FAERS Safety Report 6516709-X (Version None)
Quarter: 2009Q4

REPORT INFORMATION
  Report Type: 
  Country: None (occurrence: None)
  Receive Date: 20091223
  Receipt Date: 20090317
  Transmission Date: 20100525
  Serious: No
  Sender: FDA-Public Use
  Company Number: A0774659A

PATIENT
  Sex: Male

DRUGS (7)
  1. RYTHMOL [Suspect]
     Indication: ATRIAL FIBRILLATION
     Dosage: 150MG TWO TIMES PER WEEK
     Route: 048
     Dates: start: 20020401
  2. PROPAFENONE HCL [Suspect]
     Indication: ATRIAL FIBRILLATION
     Route: 048
  3. WARFARIN SODIUM [Concomitant]
  4. HYDROCHLOROTHIAZIDE [Concomitant]
  5. LISINOPRIL [Concomitant]
  6. COREG [Concomitant]
  7. TRICOR [Concomitant]

REACTIONS (2)
  - DRUG INEFFECTIVE [None]
  - HEART RATE IRREGULAR [None]
